FAERS Safety Report 7782560-6 (Version None)
Quarter: 2011Q3

REPORT INFORMATION
  Report Type: 
  Country: None (occurrence: None)
  Receive Date: 20110927
  Receipt Date: 20110927
  Transmission Date: 20111222
  Serious: Yes (Other)
  Sender: FDA-Public Use
  Company Number: None

PATIENT
  Age: 41 Year
  Sex: Female
  Weight: 97.5234 kg

DRUGS (1)
  1. BENLYSTA [Suspect]

REACTIONS (8)
  - ULCER HAEMORRHAGE [None]
  - LIP ULCERATION [None]
  - SKIN LESION [None]
  - STOMATITIS [None]
  - SKIN CHAPPED [None]
  - SKIN ULCER [None]
  - SKIN DISCOLOURATION [None]
  - LACERATION [None]
